FAERS Safety Report 15322454 (Version 2)
Quarter: 2018Q3

REPORT INFORMATION
  Report Type: Spontaneous
  Country: DE (occurrence: DE)
  Receive Date: 20180827
  Receipt Date: 20180903
  Transmission Date: 20181010
  Serious: Yes (Hospitalization, Other)
  Sender: FDA-Public Use
  Company Number: PHHY2017DE204633

PATIENT
  Age: 40 Year
  Sex: Female

DRUGS (4)
  1. SYREA [Suspect]
     Active Substance: HYDROXYUREA
     Indication: CHRONIC MYELOID LEUKAEMIA
     Dosage: 1000 MG, QD (7 DAYS PER WEEK)
     Route: 065
     Dates: start: 20160621
  2. HYDROXYUREA. [Suspect]
     Active Substance: HYDROXYUREA
     Indication: CHRONIC MYELOID LEUKAEMIA
     Dosage: 1000 MG, QD (ON 7 DAYS PER WEEK)
     Route: 065
     Dates: start: 20170316
  3. NILOTINIB [Suspect]
     Active Substance: NILOTINIB
     Indication: CHRONIC MYELOID LEUKAEMIA
     Dosage: 600 MG, QD (7 DAYS PER WEEK)
     Route: 065
     Dates: start: 20160621
  4. DASATINIB. [Suspect]
     Active Substance: DASATINIB
     Indication: CHRONIC MYELOID LEUKAEMIA
     Dosage: 100 MG, QD
     Route: 065
     Dates: start: 20130301, end: 20160620

REACTIONS (14)
  - Drug resistance [Unknown]
  - Treatment noncompliance [Unknown]
  - Platelet count increased [Recovering/Resolving]
  - Endometrial hyperplasia [Recovered/Resolved]
  - Flank pain [Recovering/Resolving]
  - Rash pruritic [Recovering/Resolving]
  - Malignant neoplasm progression [Unknown]
  - Dyspnoea exertional [Recovered/Resolved]
  - Headache [Unknown]
  - Therapeutic response decreased [Unknown]
  - Fatigue [Recovering/Resolving]
  - Constipation [Recovered/Resolved]
  - Menopausal symptoms [Recovered/Resolved]
  - Drug ineffective [Unknown]

NARRATIVE: CASE EVENT DATE: 20160413
